FAERS Safety Report 8947292 (Version 1)
Quarter: 2012Q4

REPORT INFORMATION
  Report Type: 
  Country: US (occurrence: US)
  Receive Date: 20121205
  Receipt Date: 20121205
  Transmission Date: 20130627
  Serious: Yes (Other)
  Sender: FDA-Public Use
  Company Number: US-ASTRAZENECA-2011SE78148

PATIENT
  Age: 63 Year
  Sex: Female
  Weight: 108.9 kg

DRUGS (2)
  1. CRESTOR [Suspect]
     Indication: BLOOD CHOLESTEROL INCREASED
     Route: 048
     Dates: start: 20110826
  2. CRESTOR [Suspect]
     Indication: BLOOD CHOLESTEROL INCREASED
     Route: 048

REACTIONS (6)
  - Ankle fracture [Unknown]
  - Malaise [Unknown]
  - Bronchitis [Unknown]
  - Impaired gastric emptying [Unknown]
  - Adverse event [Unknown]
  - Blood cholesterol increased [Unknown]
